FAERS Safety Report 6373422-X (Version None)
Quarter: 2009Q3

REPORT INFORMATION
  Report Type: 
  Country: None (occurrence: None)
  Receive Date: 20090924
  Receipt Date: 20090729
  Transmission Date: 20100115
  Serious: No
  Sender: FDA-Public Use
  Company Number: US-ASTRAZENECA-2009UW06920

PATIENT
  Age: 56 Year
  Sex: Female

DRUGS (4)
  1. SEROQUEL [Suspect]
     Indication: BIPOLAR DISORDER
     Dosage: AS NEEDED
     Route: 048
     Dates: start: 20050901
  2. LAMICTAL [Concomitant]
  3. DEPAKOTE [Concomitant]
  4. AMBIEN [Concomitant]

REACTIONS (4)
  - DROOLING [None]
  - GLOSSODYNIA [None]
  - TONGUE DISORDER [None]
  - TONGUE SPASM [None]
